FAERS Safety Report 15977848 (Version 1)
Quarter: 2019Q1

REPORT INFORMATION
  Report Type: Spontaneous
  Country: US (occurrence: US)
  Receive Date: 20190218
  Receipt Date: 20190218
  Transmission Date: 20190418
  Serious: No
  Sender: FDA-Public Use
  Company Number: US-ASTRAZENECA-2019SE24874

PATIENT
  Age: 58 Year
  Sex: Female
  Weight: 55.3 kg

DRUGS (3)
  1. OMNARIS [Suspect]
     Active Substance: CICLESONIDE
     Indication: DUST ALLERGY
     Dosage: SPRAYS IN EACH NOSTRIL TWO TIMES A DAY
     Route: 045
     Dates: end: 20190208
  2. OMNARIS [Suspect]
     Active Substance: CICLESONIDE
     Indication: HYPERSENSITIVITY
     Dosage: SPRAYS IN EACH NOSTRIL TWO TIMES A DAY
     Route: 045
     Dates: end: 20190208
  3. OMNARIS [Suspect]
     Active Substance: CICLESONIDE
     Indication: FOOD ALLERGY
     Dosage: SPRAYS IN EACH NOSTRIL TWO TIMES A DAY
     Route: 045
     Dates: end: 20190208

REACTIONS (3)
  - Product dose omission [Unknown]
  - Migraine [Recovered/Resolved]
  - Allergic sinusitis [Not Recovered/Not Resolved]

NARRATIVE: CASE EVENT DATE: 20190208
